FAERS Safety Report 5766773-0 (Version None)
Quarter: 2008Q2

REPORT INFORMATION
  Report Type: 
  Country: None (occurrence: None)
  Receive Date: 20080612
  Receipt Date: 20080602
  Transmission Date: 20081010
  Serious: Yes (Other)
  Sender: FDA-Public Use
  Company Number: FR-ROCHE-569168

PATIENT
  Age: 84 Year
  Sex: Male

DRUGS (19)
  1. NAPROXEN SODIUM [Suspect]
     Indication: PAIN
     Route: 065
     Dates: start: 20080522, end: 20080530
  2. PROPOFAN [Concomitant]
  3. PROPOFAN [Concomitant]
  4. PROPOFAN [Concomitant]
  5. PROPOFAN [Concomitant]
  6. PROPOFAN [Concomitant]
  7. PROPOFAN [Concomitant]
  8. VASTAREL [Concomitant]
  9. PREVISCAN [Concomitant]
     Indication: CARDIOVASCULAR EVENT PROPHYLAXIS
  10. PREVISCAN [Concomitant]
  11. BETNEVAL [Concomitant]
  12. PERMIXON [Concomitant]
  13. PRITOR [Concomitant]
  14. FUROSEMIDE [Concomitant]
     Indication: PROPHYLAXIS
  15. BISOPROLOL FUMARATE [Concomitant]
     Indication: HYPERTENSION
  16. LANZOR [Concomitant]
  17. TRIMETAZIDINE [Concomitant]
  18. DAFLON [Concomitant]
  19. DAFLON [Concomitant]

REACTIONS (1)
  - ESCHAR [None]
